FAERS Safety Report 20743671 (Version 1)
Quarter: 2022Q2

REPORT INFORMATION
  Report Type: Spontaneous
  Country: FR (occurrence: FR)
  Receive Date: 20220425
  Receipt Date: 20220425
  Transmission Date: 20220721
  Serious: Yes (Death, Other)
  Sender: FDA-Public Use
  Company Number: FR-AFSSAPS-AM20221033

PATIENT

DRUGS (9)
  1. ESOMEPRAZOLE [Suspect]
     Active Substance: ESOMEPRAZOLE
     Indication: Prophylaxis against gastrointestinal ulcer
     Dosage: 20 MILLIGRAM, PER DAY
     Route: 048
  2. CALCIUM [Suspect]
     Active Substance: CALCIUM
     Indication: Mineral supplementation
     Dosage: 500 MILLIGRAM PER DAY
     Route: 048
  3. NULOJIX [Suspect]
     Active Substance: BELATACEPT
     Indication: Prophylaxis against transplant rejection
     Dosage: 360 MILLIGRAM, PER 1 MONTH
     Route: 041
     Dates: start: 201701
  4. PREDNISONE [Suspect]
     Active Substance: PREDNISONE
     Indication: Prophylaxis against transplant rejection
     Dosage: 10 MILLIGRAM, PER DAY
     Route: 048
  5. URAPIDIL [Suspect]
     Active Substance: URAPIDIL
     Indication: Hypertension
     Dosage: 180 MILLIGRAM, PER DAY
     Route: 048
  6. CANDESARTAN CILEXETIL [Suspect]
     Active Substance: CANDESARTAN CILEXETIL
     Indication: Hypertension
     Dosage: 8 MILLIGRAM, PER AY
     Route: 048
  7. METOPROLOL [Suspect]
     Active Substance: METOPROLOL
     Indication: Hypertension
     Dosage: 100 MILLIGRAM PER DAY
     Route: 048
  8. LERCANIDIPINE [Suspect]
     Active Substance: LERCANIDIPINE
     Indication: Hypertension
     Dosage: 20 MILLIGRAM PER DAY
     Route: 048
  9. KARDEGIC [Suspect]
     Active Substance: ASPIRIN DL-LYSINE
     Indication: Cardiomyopathy
     Dosage: 1 DOSAGE FORM PER DAY
     Route: 048

REACTIONS (1)
  - Sudden death [Fatal]

NARRATIVE: CASE EVENT DATE: 20220407
